FAERS Safety Report 19609786 (Version 3)
Quarter: 2021Q3

REPORT INFORMATION
  Report Type: Spontaneous
  Country: CA (occurrence: CA)
  Receive Date: 20210726
  Receipt Date: 20210928
  Transmission Date: 20211014
  Serious: Yes (Other)
  Sender: FDA-Public Use
  Company Number: CA-ORION CORPORATION ORION PHARMA-21_00015254

PATIENT
  Age: 22 Year
  Sex: Male
  Weight: 60 kg

DRUGS (8)
  1. INFLECTRA [Suspect]
     Active Substance: INFLIXIMAB-DYYB
     Dosage: CYCLIC (5MG AT WEEK 0,2,6 THEN EVERY 8 WEEKS)
     Route: 042
     Dates: start: 20210714
  2. INFLECTRA [Suspect]
     Active Substance: INFLIXIMAB-DYYB
     Dosage: CYCLIC (5MG AT WEEK 0,2,6 THEN EVERY 8 WEEKS)
     Route: 042
     Dates: start: 20210908
  3. INFLECTRA [Suspect]
     Active Substance: INFLIXIMAB-DYYB
     Route: 042
  4. VIT D [Concomitant]
     Active Substance: VITAMIN D NOS
     Route: 065
  5. INFLECTRA [Suspect]
     Active Substance: INFLIXIMAB-DYYB
     Indication: CROHN^S DISEASE
     Dosage: CYCLIC (5MG AT WEEK 0,2,6 THEN EVERY 8 WEEKS)
     Route: 042
     Dates: start: 20210602
  6. INFLECTRA [Suspect]
     Active Substance: INFLIXIMAB-DYYB
     Dosage: CYCLIC (5MG AT WEEK 0,2,6 THEN EVERY 8 WEEKS)
     Route: 042
     Dates: start: 20210616
  7. FOLIC ACID. [Concomitant]
     Active Substance: FOLIC ACID
     Route: 065
  8. METHOTREXATE (TRADE NAME UNKNOWN) [Suspect]
     Active Substance: METHOTREXATE
     Indication: PRODUCT USED FOR UNKNOWN INDICATION
     Route: 065
     Dates: start: 20210323

REACTIONS (10)
  - Scab [Unknown]
  - Constipation [Not Recovered/Not Resolved]
  - Anal fissure [Not Recovered/Not Resolved]
  - Impaired healing [Unknown]
  - Scratch [Unknown]
  - Asthenia [Not Recovered/Not Resolved]
  - Decreased appetite [Not Recovered/Not Resolved]
  - Anal abscess [Unknown]
  - Wound [Unknown]
  - Fatigue [Not Recovered/Not Resolved]

NARRATIVE: CASE EVENT DATE: 2021
